FAERS Safety Report 11596685 (Version 5)
Quarter: 2015Q4

REPORT INFORMATION
  Report Type: Report from Study
  Country: DE (occurrence: DE)
  Receive Date: 20151006
  Receipt Date: 20151229
  Transmission Date: 20160304
  Serious: Yes (Hospitalization)
  Sender: FDA-Public Use
  Company Number: PHHY2015DE118941

PATIENT
  Age: 49 Year
  Sex: Female
  Weight: 67 kg

DRUGS (3)
  1. ILARIS [Suspect]
     Active Substance: CANAKINUMAB
     Indication: CRYOPYRIN ASSOCIATED PERIODIC SYNDROME
     Dosage: 300 MG, EVERY 8 WEEKS
     Route: 058
     Dates: start: 20100916
  2. TRYPTAN [Concomitant]
     Indication: MIGRAINE
     Dosage: 8 TIMES PER MONTH
     Route: 065
  3. ILARIS [Suspect]
     Active Substance: CANAKINUMAB
     Dosage: 300 MG, Q8 WEEKS
     Route: 058
     Dates: start: 20150922

REACTIONS (10)
  - Colon cancer [Not Recovered/Not Resolved]
  - Blood alkaline phosphatase increased [Unknown]
  - Pyrexia [Unknown]
  - Platelet count increased [Unknown]
  - Transaminases increased [Unknown]
  - Metastases to liver [Not Recovered/Not Resolved]
  - C-reactive protein increased [Unknown]
  - Weight decreased [Unknown]
  - Gamma-glutamyltransferase increased [Unknown]
  - Blood lactate dehydrogenase increased [Unknown]

NARRATIVE: CASE EVENT DATE: 20150828
